FAERS Safety Report 24370674 (Version 1)
Quarter: 2024Q3

REPORT INFORMATION
  Report Type: Spontaneous
  Country: US (occurrence: US)
  Receive Date: 20240927
  Receipt Date: 20240927
  Transmission Date: 20241016
  Serious: No
  Sender: RECKITT BENCKISER
  Company Number: US-Indivior Limited-INDV-141842-2023

PATIENT
  Age: 52 Year
  Sex: Female

DRUGS (4)
  1. PERSERIS [Suspect]
     Active Substance: RISPERIDONE
     Indication: Schizophrenia
     Dosage: 120 MILLIGRAM, QMO
     Route: 058
     Dates: start: 20230907
  2. PERSERIS [Suspect]
     Active Substance: RISPERIDONE
     Dosage: 120 MILLIGRAM, QMO
     Route: 058
     Dates: start: 20231006
  3. PERSERIS [Suspect]
     Active Substance: RISPERIDONE
     Dosage: 120 MILLIGRAM, QMO
     Route: 058
     Dates: start: 20231103
  4. PERSERIS [Suspect]
     Active Substance: RISPERIDONE
     Dosage: 120 MILLIGRAM, QMO
     Route: 058
     Dates: start: 20231130

REACTIONS (1)
  - Injection site infection [Not Recovered/Not Resolved]

NARRATIVE: CASE EVENT DATE: 20231101
